FAERS Safety Report 9300819 (Version 3)
Quarter: 2013Q2

REPORT INFORMATION
  Report Type: Report from Study
  Country: JP (occurrence: JP)
  Receive Date: 20130521
  Receipt Date: 20130625
  Transmission Date: 20140414
  Serious: Yes (Hospitalization)
  Sender: FDA-Public Use
  Company Number: JP-PFIZER INC-2013148687

PATIENT
  Age: 33 Year
  Sex: Male
  Weight: 57 kg

DRUGS (11)
  1. CRIZOTINIB [Suspect]
     Indication: NON-SMALL CELL LUNG CANCER
     Dosage: 250 MG, 2X/DAY
     Route: 048
     Dates: start: 20130119, end: 20130131
  2. FLAVERIC [Concomitant]
     Dosage: 20 MG, 3X/DAY
     Route: 048
     Dates: end: 20130131
  3. KIPRES [Concomitant]
     Dosage: 10 MG, 1X/DAY
     Route: 048
     Dates: end: 20130130
  4. TAKEPRON OD [Concomitant]
     Dosage: 30 MG, 1X/DAY
     Route: 048
     Dates: end: 20130130
  5. PRIMPERAN [Concomitant]
     Dosage: 10 MG, 3X/DAY
     Route: 048
     Dates: start: 20130119, end: 20130122
  6. PRIMPERAN [Concomitant]
     Dosage: 5 MG, 3X/DAY
     Route: 048
     Dates: start: 20130123, end: 20130131
  7. BIO THREE [Concomitant]
     Dosage: 2 DF, 3X/DAY
     Route: 048
     Dates: start: 20130122, end: 20130124
  8. BIO THREE [Concomitant]
     Dosage: 1 DF, 3X/DAY
     Route: 048
     Dates: start: 20130125, end: 20130128
  9. CODEINE PHOSPHATE [Concomitant]
     Dosage: 20 MG, 2X/DAY
     Route: 048
     Dates: start: 20130126, end: 20130126
  10. ARCRANE [Concomitant]
     Dosage: 20 ML, 3X/DAY
     Route: 048
     Dates: start: 20130128, end: 20130131
  11. LOXONIN [Concomitant]
     Dosage: 60 MG, 1X/DAY
     Route: 048
     Dates: start: 20130129, end: 20130131

REACTIONS (2)
  - Oesophagitis [Recovered/Resolved]
  - Oesophageal fistula [Recovered/Resolved]
